FAERS Safety Report 7675284-7 (Version None)
Quarter: 2011Q3

REPORT INFORMATION
  Report Type: 
  Country: None (occurrence: None)
  Receive Date: 20110810
  Receipt Date: 20110808
  Transmission Date: 20111222
  Serious: Yes (Hospitalization, Other)
  Sender: FDA-Public Use
  Company Number: CA-ABBOTT-11P-028-0844717-00

PATIENT
  Sex: Male

DRUGS (1)
  1. LUPRON DEPOT [Suspect]
     Indication: PROSTATE CANCER
     Dates: start: 20051107

REACTIONS (3)
  - LOSS OF CONSCIOUSNESS [None]
  - PROSTATIC SPECIFIC ANTIGEN ABNORMAL [None]
  - CONFUSIONAL STATE [None]
